FAERS Safety Report 16447183 (Version 10)
Quarter: 2021Q3

REPORT INFORMATION
  Report Type: Report from Study
  Country: TW (occurrence: TW)
  Receive Date: 20190618
  Receipt Date: 20210715
  Transmission Date: 20211014
  Serious: Yes (Hospitalization, Other)
  Sender: FDA-Public Use
  Company Number: TW-INCYTE CORPORATION-2019IN003497

PATIENT

DRUGS (286)
  1. ALFACALCIDOL [Concomitant]
     Active Substance: ALFACALCIDOL
     Dosage: 0.5 UG
     Route: 048
     Dates: start: 20200811, end: 20200901
  2. AMLODIPINE, VALSARTAN AND HYDROCHLOROTHIAZIDE [Concomitant]
     Active Substance: AMLODIPINE BESYLATE\HYDROCHLOROTHIAZIDE\VALSARTAN
     Dosage: 10/ 160/ 25 MG
     Route: 048
     Dates: start: 20190611, end: 20190613
  3. AMLODIPINE, VALSARTAN AND HYDROCHLOROTHIAZIDE [Concomitant]
     Active Substance: AMLODIPINE BESYLATE\HYDROCHLOROTHIAZIDE\VALSARTAN
     Dosage: 10/ 160/ 25 MG
     Route: 048
     Dates: start: 20191213, end: 20200113
  4. AMLODIPINE, VALSARTAN AND HYDROCHLOROTHIAZIDE [Concomitant]
     Active Substance: AMLODIPINE BESYLATE\HYDROCHLOROTHIAZIDE\VALSARTAN
     Dosage: 10/ 160/ 25 MG
     Route: 048
     Dates: start: 20200814, end: 20200819
  5. AMLODIPINE [Concomitant]
     Active Substance: AMLODIPINE BESYLATE
     Dosage: 5 MG
     Route: 048
     Dates: start: 20200807, end: 20200807
  6. AMLODIPINE [Concomitant]
     Active Substance: AMLODIPINE BESYLATE
     Dosage: 5 MG
     Route: 048
     Dates: start: 20200822, end: 20200822
  7. BISOPROLOL [Concomitant]
     Active Substance: BISOPROLOL
     Dosage: 5 MG
     Route: 048
     Dates: start: 20190331, end: 20190429
  8. BISOPROLOL [Concomitant]
     Active Substance: BISOPROLOL
     Dosage: 1.25 MG
     Route: 048
     Dates: start: 20200722, end: 20200722
  9. FUROSEMIDE. [Concomitant]
     Active Substance: FUROSEMIDE
     Dosage: 40 MG/TAB
     Route: 048
     Dates: start: 20190417, end: 20190419
  10. FUROSEMIDE. [Concomitant]
     Active Substance: FUROSEMIDE
     Dosage: 20 MG/VIAL
     Route: 042
     Dates: start: 20190419, end: 20190420
  11. FUROSEMIDE. [Concomitant]
     Active Substance: FUROSEMIDE
     Dosage: 20 MG/AMP
     Route: 042
     Dates: start: 20191015, end: 20191015
  12. FUROSEMIDE. [Concomitant]
     Active Substance: FUROSEMIDE
     Dosage: 20 MG/AMP
     Route: 042
     Dates: start: 20200505, end: 20200505
  13. NICARDIPINE [Concomitant]
     Active Substance: NICARDIPINE
     Dosage: 50 MG, AMP
     Route: 042
     Dates: start: 20200807, end: 20200818
  14. MINOXIDIL. [Concomitant]
     Active Substance: MINOXIDIL
     Dosage: 10 MG
     Route: 048
     Dates: start: 20191221, end: 20191223
  15. PENTOXIFYLLINE. [Concomitant]
     Active Substance: PENTOXIFYLLINE
     Indication: PERIPHERAL ARTERIAL OCCLUSIVE DISEASE
     Dosage: 400 MG
     Route: 048
     Dates: start: 20150326, end: 20190429
  16. INSULIN ASPART [Concomitant]
     Active Substance: INSULIN ASPART
     Dosage: 2 U
     Route: 058
     Dates: start: 20200806, end: 20200806
  17. INSULIN ASPART [Concomitant]
     Active Substance: INSULIN ASPART
     Dosage: 14 U
     Route: 058
     Dates: start: 20200809, end: 20200809
  18. INSULIN ASPART [Concomitant]
     Active Substance: INSULIN ASPART
     Dosage: 5 U
     Route: 058
     Dates: start: 20200825, end: 20200825
  19. MEGESTROL [Concomitant]
     Active Substance: MEGESTROL
     Indication: PROPHYLAXIS
     Dosage: 400 MG
     Route: 048
     Dates: start: 20191114, end: 20191128
  20. DOXAZOSIN [Concomitant]
     Active Substance: DOXAZOSIN MESYLATE
     Dosage: 4 MG
     Route: 048
     Dates: start: 20190612, end: 20190614
  21. METOLAZONE. [Concomitant]
     Active Substance: METOLAZONE
     Dosage: 0.5 MG
     Route: 048
     Dates: start: 20190420, end: 20190429
  22. HYDRALAZINE [Concomitant]
     Active Substance: HYDRALAZINE HYDROCHLORIDE
     Dosage: 10 MG
     Route: 048
     Dates: start: 20190630, end: 20190702
  23. CHLORPHENIRAMINE [CHLORPHENAMINE] [Concomitant]
     Active Substance: CHLORPHENIRAMINE
     Dosage: 5 MG/ AMP
     Route: 042
     Dates: start: 20190406, end: 20190406
  24. CHLORPHENIRAMINE [CHLORPHENAMINE] [Concomitant]
     Active Substance: CHLORPHENIRAMINE
     Dosage: 5 MG/ AMP
     Route: 042
     Dates: start: 20190806, end: 20190806
  25. CHLORPHENIRAMINE [CHLORPHENAMINE] [Concomitant]
     Active Substance: CHLORPHENIRAMINE
     Dosage: 5 MG/ AMP
     Route: 042
     Dates: start: 20200718, end: 20200718
  26. CHLORPHENIRAMINE [CHLORPHENAMINE] [Concomitant]
     Active Substance: CHLORPHENIRAMINE
     Dosage: 5 MG/AMP
     Route: 042
     Dates: start: 20200727, end: 20200727
  27. CHLORPHENIRAMINE [CHLORPHENAMINE] [Concomitant]
     Active Substance: CHLORPHENIRAMINE
     Dosage: 5 MG/AMP
     Route: 042
     Dates: start: 20200809, end: 20200809
  28. CHLORPHENIRAMINE [CHLORPHENAMINE] [Concomitant]
     Active Substance: CHLORPHENIRAMINE
     Dosage: 5 MG/AMP
     Route: 042
     Dates: start: 20200828, end: 20200828
  29. INSULIN HUMAN [Concomitant]
     Active Substance: INSULIN HUMAN
     Indication: DIABETES MELLITUS
     Dosage: 10 U/ VIAL
     Route: 042
     Dates: start: 20200708, end: 20200708
  30. INSULIN HUMAN [Concomitant]
     Active Substance: INSULIN HUMAN
     Dosage: 6 U/ VIAL
     Route: 058
     Dates: start: 20200714, end: 20200714
  31. INSULIN DEGLUDEC [Concomitant]
     Active Substance: INSULIN DEGLUDEC
     Dosage: 10 U/ PEN
     Route: 058
     Dates: start: 20200718, end: 20200718
  32. INSULIN DEGLUDEC [Concomitant]
     Active Substance: INSULIN DEGLUDEC
     Dosage: 6 U/ PEN
     Route: 058
     Dates: start: 20200803, end: 20200806
  33. INSULIN DEGLUDEC [Concomitant]
     Active Substance: INSULIN DEGLUDEC
     Dosage: 16 U/ PEN
     Route: 058
     Dates: start: 20200807, end: 20200812
  34. AMLODIPINE [Concomitant]
     Active Substance: AMLODIPINE BESYLATE
     Dosage: 5 MG
     Route: 048
     Dates: start: 20200820, end: 20200820
  35. FUROSEMIDE. [Concomitant]
     Active Substance: FUROSEMIDE
     Indication: HYPERTENSIVE HEART DISEASE
     Dosage: 40 MG/AMP
     Route: 042
     Dates: start: 20181118, end: 20181118
  36. FUROSEMIDE. [Concomitant]
     Active Substance: FUROSEMIDE
     Dosage: 20 MG/AMPL
     Route: 042
     Dates: start: 20190711, end: 20190711
  37. FUROSEMIDE. [Concomitant]
     Active Substance: FUROSEMIDE
     Dosage: 40 MG/AMP
     Route: 042
     Dates: start: 20191212, end: 20191212
  38. FUROSEMIDE. [Concomitant]
     Active Substance: FUROSEMIDE
     Dosage: 20 MG/AMP
     Route: 042
     Dates: start: 20200219, end: 20200219
  39. FUROSEMIDE. [Concomitant]
     Active Substance: FUROSEMIDE
     Dosage: 20 MG/AMP
     Route: 042
     Dates: start: 20200303, end: 20200303
  40. FUROSEMIDE. [Concomitant]
     Active Substance: FUROSEMIDE
     Dosage: 20 MG/AMP
     Route: 042
     Dates: start: 20200804, end: 20200806
  41. CHLORPHENIRAMIN [Concomitant]
     Active Substance: CHLORPHENIRAMINE MALEATE
     Indication: ALLERGY PROPHYLAXIS
     Dosage: 5 MG, AMP
     Route: 042
     Dates: start: 20181030, end: 20181030
  42. LINAGLIPTIN [Concomitant]
     Active Substance: LINAGLIPTIN
     Dosage: 5 MG
     Route: 048
     Dates: start: 20190509, end: 20190510
  43. INSULIN ASPART [Concomitant]
     Active Substance: INSULIN ASPART
     Dosage: 4 U
     Route: 058
     Dates: start: 20200731, end: 20200731
  44. INSULIN ASPART [Concomitant]
     Active Substance: INSULIN ASPART
     Dosage: 6 U
     Route: 058
     Dates: start: 20200826, end: 20200827
  45. LORAZEPAM. [Concomitant]
     Active Substance: LORAZEPAM
     Indication: INSOMNIA
     Dosage: 0.5 MG
     Route: 048
     Dates: start: 20190415, end: 20190429
  46. DOXAZOSIN [Concomitant]
     Active Substance: DOXAZOSIN MESYLATE
     Dosage: 8 MG
     Route: 048
     Dates: start: 20190415, end: 20190429
  47. DOXAZOSIN [Concomitant]
     Active Substance: DOXAZOSIN MESYLATE
     Dosage: 4 MG
     Route: 048
     Dates: start: 20191001, end: 20191001
  48. ESTAZOLAM. [Concomitant]
     Active Substance: ESTAZOLAM
     Indication: PRODUCT USED FOR UNKNOWN INDICATION
     Dosage: 1 MG
     Route: 048
     Dates: start: 20191014, end: 20191021
  49. LABETALOL [Concomitant]
     Active Substance: LABETALOL\LABETALOL HYDROCHLORIDE
     Dosage: 12.5 MG/AMP
     Route: 042
     Dates: start: 20190719, end: 20190719
  50. FEBUXOSTAT. [Concomitant]
     Active Substance: FEBUXOSTAT
     Indication: HYPERURICAEMIA
     Dosage: 40 MG
     Route: 048
     Dates: start: 20140930, end: 20191223
  51. HYDRALAZINE [Concomitant]
     Active Substance: HYDRALAZINE HYDROCHLORIDE
     Dosage: 25 MG
     Route: 048
     Dates: start: 20200717, end: 20200722
  52. CHLORPHENIRAMINE [CHLORPHENAMINE] [Concomitant]
     Active Substance: CHLORPHENIRAMINE
     Dosage: 5 MG/ AMP
     Route: 042
     Dates: start: 20190730, end: 20190730
  53. CHLORPHENIRAMINE [CHLORPHENAMINE] [Concomitant]
     Active Substance: CHLORPHENIRAMINE
     Dosage: 5 MG/ AMP
     Route: 042
     Dates: start: 20191209, end: 20191209
  54. CHLORPHENIRAMINE [CHLORPHENAMINE] [Concomitant]
     Active Substance: CHLORPHENIRAMINE
     Dosage: 5 MG/ AMP
     Route: 042
     Dates: start: 20200303, end: 20200303
  55. CHLORPHENIRAMINE [CHLORPHENAMINE] [Concomitant]
     Active Substance: CHLORPHENIRAMINE
     Dosage: 5 MG/ AMP
     Route: 042
     Dates: start: 20200414, end: 20200414
  56. CHLORPHENIRAMINE [CHLORPHENAMINE] [Concomitant]
     Active Substance: CHLORPHENIRAMINE
     Dosage: 5 MG/ AMP
     Route: 042
     Dates: start: 20200713, end: 20200713
  57. CHLORPHENIRAMINE [CHLORPHENAMINE] [Concomitant]
     Active Substance: CHLORPHENIRAMINE
     Dosage: 5 MG/ AMP
     Route: 042
     Dates: start: 20200714, end: 20200714
  58. CHLORPHENIRAMINE [CHLORPHENAMINE] [Concomitant]
     Active Substance: CHLORPHENIRAMINE
     Dosage: 5 MG/ AMP
     Route: 042
     Dates: start: 20200721, end: 20200721
  59. PIRENOXINE [Concomitant]
     Active Substance: PIRENOXINE
     Indication: PRODUCT USED FOR UNKNOWN INDICATION
     Dosage: 5 ML
     Route: 065
     Dates: start: 20191008, end: 20191105
  60. INSULIN DEGLUDEC [Concomitant]
     Active Substance: INSULIN DEGLUDEC
     Dosage: 14 U/ PEN
     Route: 058
     Dates: start: 20200813, end: 20200814
  61. JAKAVI [Suspect]
     Active Substance: RUXOLITINIB
     Indication: MYELOFIBROSIS
     Dosage: 30 MG, UNK
     Route: 048
     Dates: start: 20170104
  62. JAKAVI [Suspect]
     Active Substance: RUXOLITINIB
     Dosage: 30 MG, (DAILY)
     Route: 048
     Dates: start: 20181030, end: 20190711
  63. JAKAVI [Suspect]
     Active Substance: RUXOLITINIB
     Dosage: 20 MG (DAILY)
     Route: 048
     Dates: start: 20191224, end: 20200705
  64. HYDROXYUREA. [Suspect]
     Active Substance: HYDROXYUREA
     Indication: MYELOFIBROSIS
     Dosage: UNK
     Route: 065
     Dates: start: 20161121, end: 20190227
  65. ALFACALCIDOL [Concomitant]
     Active Substance: ALFACALCIDOL
     Indication: CHRONIC KIDNEY DISEASE
     Dosage: 0.5 UG
     Route: 048
     Dates: start: 20170601, end: 20190304
  66. AMLODIPINE [Concomitant]
     Active Substance: AMLODIPINE BESYLATE
     Dosage: 5 MG
     Route: 048
     Dates: start: 20190305, end: 20190411
  67. BISOPROLOL [Concomitant]
     Active Substance: BISOPROLOL
     Dosage: 5 MG
     Route: 048
     Dates: start: 20190505, end: 20191116
  68. BISOPROLOL [Concomitant]
     Active Substance: BISOPROLOL
     Dosage: 2.5 MG
     Route: 048
     Dates: start: 20191116, end: 20191118
  69. BISOPROLOL [Concomitant]
     Active Substance: BISOPROLOL
     Dosage: 1.25 MG
     Route: 048
     Dates: start: 20200711, end: 20200813
  70. FUROSEMIDE. [Concomitant]
     Active Substance: FUROSEMIDE
     Dosage: 40 MG/VIAL
     Route: 042
     Dates: start: 20190329, end: 20190329
  71. FUROSEMIDE. [Concomitant]
     Active Substance: FUROSEMIDE
     Dosage: 60 MG/VIAL
     Route: 042
     Dates: start: 20190418, end: 20190418
  72. FUROSEMIDE. [Concomitant]
     Active Substance: FUROSEMIDE
     Dosage: 20 MG/AMP
     Route: 042
     Dates: start: 20190917, end: 20190917
  73. FUROSEMIDE. [Concomitant]
     Active Substance: FUROSEMIDE
     Dosage: 20 MG/AMP
     Route: 042
     Dates: start: 20191029, end: 20191029
  74. NICARDIPINE [Concomitant]
     Active Substance: NICARDIPINE
     Indication: HYPERTENSIVE HEART DISEASE
     Dosage: 50 MG, AMP
     Route: 042
     Dates: start: 20191002, end: 20191002
  75. ISOSORBIDE MONONITRATE. [Concomitant]
     Active Substance: ISOSORBIDE MONONITRATE
     Indication: HYPERTENSIVE HEART DISEASE
     Dosage: 60 MG
     Route: 048
     Dates: start: 20190712, end: 20190806
  76. WARFARIN [Concomitant]
     Active Substance: WARFARIN
     Dosage: 7.5 MG
     Route: 048
     Dates: start: 20190430, end: 20190513
  77. SPIRONOLACTONE. [Concomitant]
     Active Substance: SPIRONOLACTONE
     Indication: HYPERTENSIVE HEART DISEASE
     Dosage: 25 MG
     Route: 048
     Dates: start: 20190430, end: 20190624
  78. MINOXIDIL. [Concomitant]
     Active Substance: MINOXIDIL
     Dosage: 5 MG
     Route: 048
     Dates: start: 20200707, end: 20200707
  79. MINOXIDIL. [Concomitant]
     Active Substance: MINOXIDIL
     Dosage: 10 MG
     Route: 048
     Dates: start: 20200901, end: 20200905
  80. INSULIN ASPART [Concomitant]
     Active Substance: INSULIN ASPART
     Dosage: 8 U
     Route: 058
     Dates: start: 20200826, end: 20200826
  81. CARVEDILOL. [Concomitant]
     Active Substance: CARVEDILOL
     Dosage: 25 MG
     Route: 048
     Dates: start: 20191214, end: 20200113
  82. IMIDAPRIL HCL [Concomitant]
     Active Substance: IMIDAPRIL HYDROCHLORIDE
     Indication: HYPERTENSIVE HEART DISEASE
     Dosage: 5 MG
     Route: 048
     Dates: start: 20190305, end: 20190403
  83. DOXAZOSIN [Concomitant]
     Active Substance: DOXAZOSIN MESYLATE
     Indication: HYPERTENSIVE HEART DISEASE
     Dosage: 4 MG
     Route: 048
     Dates: start: 20190411, end: 20190415
  84. LABETALOL [Concomitant]
     Active Substance: LABETALOL\LABETALOL HYDROCHLORIDE
     Indication: HYPERTENSIVE HEART DISEASE
     Dosage: 12.5 MG/AMP
     Route: 042
     Dates: start: 20181118, end: 20181118
  85. LABETALOL [Concomitant]
     Active Substance: LABETALOL\LABETALOL HYDROCHLORIDE
     Dosage: 12.5 MG/AMP
     Route: 042
     Dates: start: 20191001, end: 20191001
  86. FEBUXOSTAT. [Concomitant]
     Active Substance: FEBUXOSTAT
     Dosage: 40 MG
     Route: 048
     Dates: start: 20200505, end: 20200708
  87. HYDRALAZINE [Concomitant]
     Active Substance: HYDRALAZINE HYDROCHLORIDE
     Dosage: 25 MG
     Route: 048
     Dates: start: 20190724
  88. HYDRALAZINE [Concomitant]
     Active Substance: HYDRALAZINE HYDROCHLORIDE
     Dosage: 10 MG
     Route: 048
     Dates: start: 20200710, end: 20200717
  89. CHLORPHENIRAMINE [CHLORPHENAMINE] [Concomitant]
     Active Substance: CHLORPHENIRAMINE
     Dosage: 5 MG/ AMP
     Route: 042
     Dates: start: 20190419, end: 20190419
  90. CHLORPHENIRAMINE [CHLORPHENAMINE] [Concomitant]
     Active Substance: CHLORPHENIRAMINE
     Dosage: 5 MG/ AMP
     Route: 042
     Dates: start: 20190610, end: 20190610
  91. CHLORPHENIRAMINE [CHLORPHENAMINE] [Concomitant]
     Active Substance: CHLORPHENIRAMINE
     Dosage: 5 MG/ AMP
     Route: 042
     Dates: start: 20190614, end: 20190614
  92. CHLORPHENIRAMINE [CHLORPHENAMINE] [Concomitant]
     Active Substance: CHLORPHENIRAMINE
     Dosage: 5 MG/ AMP
     Route: 042
     Dates: start: 20190625, end: 20190625
  93. CHLORPHENIRAMINE [CHLORPHENAMINE] [Concomitant]
     Active Substance: CHLORPHENIRAMINE
     Dosage: 5 MG/ AMP
     Route: 042
     Dates: start: 20191001, end: 20191001
  94. CHLORPHENIRAMINE [CHLORPHENAMINE] [Concomitant]
     Active Substance: CHLORPHENIRAMINE
     Dosage: 5 MG/ AMP
     Route: 042
     Dates: start: 20200325, end: 20200325
  95. CHLORPHENIRAMINE [CHLORPHENAMINE] [Concomitant]
     Active Substance: CHLORPHENIRAMINE
     Dosage: 5 MG/ AMP
     Route: 042
     Dates: start: 20200505, end: 20200505
  96. CHLORPHENIRAMINE [CHLORPHENAMINE] [Concomitant]
     Active Substance: CHLORPHENIRAMINE
     Dosage: 5 MG/ AMP
     Route: 042
     Dates: start: 20200526, end: 20200526
  97. CHLORPHENIRAMINE [CHLORPHENAMINE] [Concomitant]
     Active Substance: CHLORPHENIRAMINE
     Dosage: 5 MG/ AMP
     Route: 042
     Dates: start: 20200626, end: 20200626
  98. INSULIN HUMAN [Concomitant]
     Active Substance: INSULIN HUMAN
     Dosage: 6 U/ VIAL
     Route: 058
     Dates: start: 20200824, end: 20200824
  99. AMIYU [Concomitant]
     Active Substance: AMINO ACIDS, SOURCE UNSPECIFIED
     Indication: CHRONIC KIDNEY DISEASE
     Dosage: 200 ML/ BOT
     Route: 042
     Dates: start: 20191116, end: 20191120
  100. KETOSTERIL [Concomitant]
     Active Substance: AMINO ACIDS, SOURCE UNSPECIFIED
     Dosage: 2
     Route: 048
     Dates: start: 20190416, end: 20191113
  101. BISOPROLOL [Concomitant]
     Active Substance: BISOPROLOL
     Dosage: 5 MG
     Route: 048
     Dates: start: 20190123, end: 20191115
  102. BISOPROLOL [Concomitant]
     Active Substance: BISOPROLOL
     Dosage: 1.25 MG
     Route: 048
     Dates: start: 20191119, end: 20191128
  103. FUROSEMIDE. [Concomitant]
     Active Substance: FUROSEMIDE
     Dosage: 20 MG/VIAL
     Route: 042
     Dates: start: 20190406, end: 20190406
  104. FUROSEMIDE. [Concomitant]
     Active Substance: FUROSEMIDE
     Dosage: 40 MG/VIAL
     Route: 042
     Dates: start: 20190420, end: 20190423
  105. FUROSEMIDE. [Concomitant]
     Active Substance: FUROSEMIDE
     Dosage: 20 MG/AMPL
     Route: 042
     Dates: start: 20190718, end: 20190718
  106. FUROSEMIDE. [Concomitant]
     Active Substance: FUROSEMIDE
     Dosage: 40 MG/TAB
     Route: 065
     Dates: start: 20190903, end: 20190916
  107. FUROSEMIDE. [Concomitant]
     Active Substance: FUROSEMIDE
     Dosage: 20 MG/AMP
     Route: 042
     Dates: start: 20200211, end: 20200211
  108. FUROSEMIDE. [Concomitant]
     Active Substance: FUROSEMIDE
     Dosage: 20 MG/AMP
     Route: 042
     Dates: start: 20200325, end: 20200325
  109. FUROSEMIDE. [Concomitant]
     Active Substance: FUROSEMIDE
     Dosage: 20 MG/AMP
     Route: 042
     Dates: start: 20200414, end: 20200414
  110. WARFARIN [Concomitant]
     Active Substance: WARFARIN
     Dosage: 7.5 MG
     Route: 048
     Dates: start: 20190625, end: 20190930
  111. NIFEDIPINE. [Concomitant]
     Active Substance: NIFEDIPINE
     Indication: HYPERTENSIVE HEART DISEASE
     Dosage: 5 MG
     Route: 048
     Dates: start: 20190422, end: 20190422
  112. NIFEDIPINE. [Concomitant]
     Active Substance: NIFEDIPINE
     Dosage: 5 MG
     Route: 048
     Dates: start: 20190610, end: 20190610
  113. NIFEDIPINE. [Concomitant]
     Active Substance: NIFEDIPINE
     Dosage: 50 MG
     Route: 048
     Dates: start: 20191001, end: 20191001
  114. INSULIN ASPART [Concomitant]
     Active Substance: INSULIN ASPART
     Indication: DIABETES MELLITUS
     Dosage: 4 U
     Route: 058
     Dates: start: 20200719, end: 20200719
  115. INSULIN ASPART [Concomitant]
     Active Substance: INSULIN ASPART
     Dosage: 6 U
     Route: 058
     Dates: start: 20200731, end: 20200802
  116. CARVEDILOL. [Concomitant]
     Active Substance: CARVEDILOL
     Dosage: 12.5 MG
     Route: 048
     Dates: start: 20191210, end: 20191213
  117. LABETALOL [Concomitant]
     Active Substance: LABETALOL\LABETALOL HYDROCHLORIDE
     Dosage: UNK
     Route: 065
  118. HYDRALAZINE [Concomitant]
     Active Substance: HYDRALAZINE HYDROCHLORIDE
     Dosage: 10 MG
     Route: 048
     Dates: start: 20200723, end: 20200728
  119. HYDRALAZINE [Concomitant]
     Active Substance: HYDRALAZINE HYDROCHLORIDE
     Dosage: 10 MG
     Route: 048
     Dates: start: 20200815, end: 20200830
  120. ROSIS [Concomitant]
     Active Substance: FUROSEMIDE
     Indication: ACUTE PULMONARY OEDEMA
     Dosage: 40 MG, TID
     Route: 065
  121. CHLORPHENIRAMINE [CHLORPHENAMINE] [Concomitant]
     Active Substance: CHLORPHENIRAMINE
     Dosage: 5 MG/ AMP
     Route: 042
     Dates: start: 20190305, end: 20190305
  122. CHLORPHENIRAMINE [CHLORPHENAMINE] [Concomitant]
     Active Substance: CHLORPHENIRAMINE
     Dosage: 5 MG/ AMP
     Route: 042
     Dates: start: 20190330, end: 20190330
  123. CHLORPHENIRAMINE [CHLORPHENAMINE] [Concomitant]
     Active Substance: CHLORPHENIRAMINE
     Dosage: 5 MG/ AMP
     Route: 042
     Dates: start: 20191112, end: 20191112
  124. CHLORPHENIRAMINE [CHLORPHENAMINE] [Concomitant]
     Active Substance: CHLORPHENIRAMINE
     Dosage: 5 MG/ AMP
     Route: 042
     Dates: start: 20191212, end: 20191212
  125. CHLORPHENIRAMINE [CHLORPHENAMINE] [Concomitant]
     Active Substance: CHLORPHENIRAMINE
     Dosage: 5 MG/ AMP
     Route: 042
     Dates: start: 20200331, end: 20200331
  126. CHLORPHENIRAMINE [CHLORPHENAMINE] [Concomitant]
     Active Substance: CHLORPHENIRAMINE
     Dosage: 5 MG/AMP
     Route: 042
     Dates: start: 20200729, end: 20200729
  127. CHLORPHENIRAMINE [CHLORPHENAMINE] [Concomitant]
     Active Substance: CHLORPHENIRAMINE
     Dosage: 5 MG/AMP
     Route: 042
     Dates: start: 20200814, end: 20200814
  128. CHLORPHENIRAMINE [CHLORPHENAMINE] [Concomitant]
     Active Substance: CHLORPHENIRAMINE
     Dosage: 5 MG/AMP
     Route: 042
     Dates: start: 20200831, end: 20200831
  129. CHLORPHENIRAMINE [CHLORPHENAMINE] [Concomitant]
     Active Substance: CHLORPHENIRAMINE
     Dosage: 5 MG/AMP
     Route: 042
     Dates: start: 20200902, end: 20200902
  130. INSULIN HUMAN [Concomitant]
     Active Substance: INSULIN HUMAN
     Dosage: 6 U/ VIAL
     Route: 058
     Dates: start: 20200823, end: 20200823
  131. INSULIN DEGLUDEC [Concomitant]
     Active Substance: INSULIN DEGLUDEC
     Indication: DIABETES MELLITUS
     Dosage: 6 U/ FLEX TOUCH PEN
     Route: 058
     Dates: start: 20200716, end: 20200717
  132. INSULIN DEGLUDEC [Concomitant]
     Active Substance: INSULIN DEGLUDEC
     Dosage: 10 U/ PEN
     Route: 058
     Dates: start: 20200729, end: 20200729
  133. INSULIN DEGLUDEC [Concomitant]
     Active Substance: INSULIN DEGLUDEC
     Dosage: 8 U/ PEN
     Route: 058
     Dates: start: 20200731, end: 20200802
  134. JAKAVI [Suspect]
     Active Substance: RUXOLITINIB
     Dosage: 5 MG (DAILY)
     Route: 048
     Dates: start: 20200709, end: 20200714
  135. JAKAVI [Suspect]
     Active Substance: RUXOLITINIB
     Dosage: 5 MG (DAILY)
     Route: 048
     Dates: start: 20200821, end: 20200821
  136. AMLODIPINE [Concomitant]
     Active Substance: AMLODIPINE BESYLATE
     Indication: HYPERTENSIVE HEART DISEASE
     Dosage: 5 MG
     Route: 048
     Dates: start: 20170406, end: 20190211
  137. BETAMETHASONE;NEOMYCIN [Concomitant]
     Indication: PRODUCT USED FOR UNKNOWN INDICATION
     Dosage: 2/ 3.5 MG/ TUB
     Route: 050
     Dates: start: 20200206, end: 20200212
  138. KETOSTERIL [Concomitant]
     Active Substance: AMINO ACIDS, SOURCE UNSPECIFIED
     Indication: CHRONIC KIDNEY DISEASE
     Dosage: 2
     Route: 048
     Dates: start: 20190212, end: 20190412
  139. HYDROCORTISONE. [Concomitant]
     Active Substance: HYDROCORTISONE
     Dosage: 100 MG/VIAL
     Route: 042
     Dates: start: 20200219, end: 20200219
  140. FUROSEMIDE. [Concomitant]
     Active Substance: FUROSEMIDE
     Dosage: 20 MG/AMP
     Route: 042
     Dates: start: 20191001, end: 20191001
  141. FUROSEMIDE. [Concomitant]
     Active Substance: FUROSEMIDE
     Dosage: 20 MG/AMP
     Route: 042
     Dates: start: 20200331, end: 20200331
  142. SENNOSIDA A + B [Concomitant]
     Indication: CONSTIPATION
     Dosage: 12 MG
     Route: 048
     Dates: start: 20180125, end: 20191014
  143. TERAZOSIN [Concomitant]
     Active Substance: TERAZOSIN HYDROCHLORIDE
     Indication: HYPERTENSIVE HEART DISEASE
     Dosage: 2 MG
     Route: 048
     Dates: start: 20200813, end: 20200813
  144. TERAZOSIN [Concomitant]
     Active Substance: TERAZOSIN HYDROCHLORIDE
     Dosage: 2 MG
     Route: 048
     Dates: start: 20200814, end: 20200818
  145. WARFARIN [Concomitant]
     Active Substance: WARFARIN
     Indication: DIABETES MELLITUS
     Dosage: 5 MG
     Route: 048
     Dates: start: 20190402, end: 20190402
  146. WARFARIN [Concomitant]
     Active Substance: WARFARIN
     Dosage: 2.5 MG
     Route: 048
     Dates: start: 20191208, end: 20191223
  147. VALSARTAN. [Concomitant]
     Active Substance: VALSARTAN
     Indication: HYPERTENSIVE HEART DISEASE
     Dosage: 80 MG
     Route: 048
     Dates: start: 20190609, end: 20190610
  148. MINOXIDIL. [Concomitant]
     Active Substance: MINOXIDIL
     Indication: HYPERTENSIVE HEART DISEASE
     Dosage: 10 MG
     Route: 048
     Dates: start: 20191213, end: 20191213
  149. MINOXIDIL. [Concomitant]
     Active Substance: MINOXIDIL
     Dosage: 5 MG
     Route: 048
     Dates: start: 20200701, end: 20200701
  150. MINOXIDIL. [Concomitant]
     Active Substance: MINOXIDIL
     Dosage: 10 MG
     Route: 048
     Dates: start: 20200821, end: 20200824
  151. INSULIN ASPART [Concomitant]
     Active Substance: INSULIN ASPART
     Dosage: 8 U
     Route: 058
     Dates: start: 20200720, end: 20200720
  152. INSULIN ASPART [Concomitant]
     Active Substance: INSULIN ASPART
     Dosage: 6 U
     Route: 058
     Dates: start: 20200808, end: 20200808
  153. INSULIN ASPART [Concomitant]
     Active Substance: INSULIN ASPART
     Dosage: 18 U
     Route: 058
     Dates: start: 20200808, end: 20200808
  154. INSULIN ASPART [Concomitant]
     Active Substance: INSULIN ASPART
     Dosage: 12 U
     Route: 058
     Dates: start: 20200810, end: 20200810
  155. INSULIN ASPART [Concomitant]
     Active Substance: INSULIN ASPART
     Dosage: 4 U
     Route: 058
     Dates: start: 20200811, end: 20200811
  156. INSULIN ASPART [Concomitant]
     Active Substance: INSULIN ASPART
     Dosage: 8 U
     Route: 058
     Dates: start: 20200828, end: 20200829
  157. IMIDAPRIL HCL [Concomitant]
     Active Substance: IMIDAPRIL HYDROCHLORIDE
     Dosage: 5 MG
     Route: 048
     Dates: start: 20190407, end: 20190408
  158. DAILYCARE ACTIBEST [Concomitant]
     Indication: PROPHYLAXIS
     Dosage: UNK
     Route: 048
     Dates: start: 20170731, end: 20190805
  159. HYDRALAZINE [Concomitant]
     Active Substance: HYDRALAZINE HYDROCHLORIDE
     Dosage: 10 MG
     Route: 048
     Dates: start: 20190715, end: 20200720
  160. CHLORPHENIRAMINE [CHLORPHENAMINE] [Concomitant]
     Active Substance: CHLORPHENIRAMINE
     Dosage: 5 MG/ AMP
     Route: 042
     Dates: start: 20190123, end: 20190123
  161. CHLORPHENIRAMINE [CHLORPHENAMINE] [Concomitant]
     Active Substance: CHLORPHENIRAMINE
     Dosage: 5 MG/ AMP
     Route: 042
     Dates: start: 20190711, end: 20190711
  162. CHLORPHENIRAMINE [CHLORPHENAMINE] [Concomitant]
     Active Substance: CHLORPHENIRAMINE
     Dosage: 5 MG/ AMP
     Route: 042
     Dates: start: 20190917, end: 20190917
  163. CHLORPHENIRAMINE [CHLORPHENAMINE] [Concomitant]
     Active Substance: CHLORPHENIRAMINE
     Dosage: 5 MG/ AMP
     Route: 042
     Dates: start: 20191029, end: 20191029
  164. CHLORPHENIRAMINE [CHLORPHENAMINE] [Concomitant]
     Active Substance: CHLORPHENIRAMINE
     Dosage: 5 MG/ AMP
     Route: 042
     Dates: start: 20200114, end: 20200114
  165. CHLORPHENIRAMINE [CHLORPHENAMINE] [Concomitant]
     Active Substance: CHLORPHENIRAMINE
     Dosage: 5 MG/ AMP
     Route: 042
     Dates: start: 20200211, end: 20200211
  166. CHLORPHENIRAMINE [CHLORPHENAMINE] [Concomitant]
     Active Substance: CHLORPHENIRAMINE
     Dosage: 5 MG/ AMP
     Route: 042
     Dates: start: 20200623, end: 20200623
  167. CHLORPHENIRAMINE [CHLORPHENAMINE] [Concomitant]
     Active Substance: CHLORPHENIRAMINE
     Dosage: 5 MG/ AMP
     Route: 042
     Dates: start: 20200715, end: 20200715
  168. CHLORPHENIRAMINE [CHLORPHENAMINE] [Concomitant]
     Active Substance: CHLORPHENIRAMINE
     Dosage: 5 MG/AMP
     Route: 042
     Dates: start: 20200815, end: 20200815
  169. CHLORPHENIRAMINE [CHLORPHENAMINE] [Concomitant]
     Active Substance: CHLORPHENIRAMINE
     Dosage: 5 MG/AMP
     Route: 042
     Dates: start: 20200821, end: 20200821
  170. INSULIN HUMAN [Concomitant]
     Active Substance: INSULIN HUMAN
     Dosage: 100 U/ VIAL
     Route: 042
     Dates: start: 20200806, end: 20200806
  171. JAKAVI [Suspect]
     Active Substance: RUXOLITINIB
     Dosage: 15 MG (DAILY)
     Route: 048
     Dates: start: 20190712, end: 20190902
  172. JAKAVI [Suspect]
     Active Substance: RUXOLITINIB
     Dosage: 5 MG
     Route: 048
     Dates: start: 20191015, end: 20191223
  173. JAKAVI [Suspect]
     Active Substance: RUXOLITINIB
     Dosage: 10 MG (DAILY)
     Route: 048
     Dates: start: 20200706, end: 20200708
  174. AMLODIPINE, VALSARTAN AND HYDROCHLOROTHIAZIDE [Concomitant]
     Active Substance: AMLODIPINE BESYLATE\HYDROCHLOROTHIAZIDE\VALSARTAN
     Indication: HYPERTENSIVE HEART DISEASE
     Dosage: 5/ 80/ 12.5 MG
     Route: 048
     Dates: start: 20190212, end: 20190304
  175. AMLODIPINE [Concomitant]
     Active Substance: AMLODIPINE BESYLATE
     Dosage: 5 MG
     Route: 048
     Dates: start: 20190430, end: 20191014
  176. ALPRAZOLAM. [Concomitant]
     Active Substance: ALPRAZOLAM
     Indication: INSOMNIA
     Dosage: 0.5 MG
     Route: 048
     Dates: start: 20170410, end: 20200113
  177. HYDROCORTISONE. [Concomitant]
     Active Substance: HYDROCORTISONE
     Dosage: 100 MG/VIAL
     Route: 042
     Dates: start: 20191220, end: 20191220
  178. CIPROFLOXACIN. [Concomitant]
     Active Substance: CIPROFLOXACIN
     Indication: INFECTION PROPHYLAXIS
     Dosage: 400 MG/ BOT
     Route: 042
     Dates: start: 20191120, end: 20191121
  179. FUROSEMIDE. [Concomitant]
     Active Substance: FUROSEMIDE
     Indication: PROPHYLAXIS
     Dosage: 20 MG
     Route: 042
     Dates: start: 20181002, end: 20181002
  180. FUROSEMIDE. [Concomitant]
     Active Substance: FUROSEMIDE
     Dosage: 40 MG/VIAL
     Route: 042
     Dates: start: 20190330, end: 20190330
  181. FUROSEMIDE. [Concomitant]
     Active Substance: FUROSEMIDE
     Dosage: 40 MG/TAB
     Route: 048
     Dates: start: 20190423, end: 20190429
  182. FUROSEMIDE. [Concomitant]
     Active Substance: FUROSEMIDE
     Dosage: 20 MG/AMPL
     Route: 042
     Dates: start: 20190719, end: 20190719
  183. FUROSEMIDE. [Concomitant]
     Active Substance: FUROSEMIDE
     Dosage: 20 MG/AMP
     Route: 042
     Dates: start: 20200317, end: 20200317
  184. FUROSEMIDE. [Concomitant]
     Active Substance: FUROSEMIDE
     Dosage: 20 MG/AMP
     Route: 042
     Dates: start: 20200526, end: 20200526
  185. WARFARIN [Concomitant]
     Active Substance: WARFARIN
     Dosage: 7.5 MG
     Route: 048
     Dates: start: 20191001, end: 20191205
  186. NIFEDIPINE. [Concomitant]
     Active Substance: NIFEDIPINE
     Dosage: 5 MG
     Route: 048
     Dates: start: 20190606, end: 20190606
  187. MINOXIDIL. [Concomitant]
     Active Substance: MINOXIDIL
     Dosage: 10 MG
     Route: 048
     Dates: start: 20200706, end: 20200706
  188. DILTIAZEM. [Concomitant]
     Active Substance: DILTIAZEM
     Indication: HYPERTENSIVE HEART DISEASE
     Dosage: 60 MG
     Route: 048
     Dates: start: 20200820, end: 20200820
  189. PENTOXIFYLLINE. [Concomitant]
     Active Substance: PENTOXIFYLLINE
     Dosage: 400 MG
     Route: 048
     Dates: start: 20190430, end: 20191111
  190. PENTOXIFYLLINE. [Concomitant]
     Active Substance: PENTOXIFYLLINE
     Dosage: 800 MG
     Route: 048
     Dates: start: 20200114, end: 20200504
  191. PENTOXIFYLLINE. [Concomitant]
     Active Substance: PENTOXIFYLLINE
     Dosage: 400 MG
     Route: 048
     Dates: start: 20200505, end: 20200629
  192. INSULIN ASPART [Concomitant]
     Active Substance: INSULIN ASPART
     Dosage: 5 U
     Route: 058
     Dates: start: 20200802, end: 20200805
  193. INSULIN ASPART [Concomitant]
     Active Substance: INSULIN ASPART
     Dosage: 8 U
     Route: 058
     Dates: start: 20200806, end: 20200806
  194. INSULIN ASPART [Concomitant]
     Active Substance: INSULIN ASPART
     Dosage: 8 U
     Route: 065
     Dates: start: 20200808, end: 20200808
  195. INSULIN ASPART [Concomitant]
     Active Substance: INSULIN ASPART
     Dosage: 8 U
     Route: 058
     Dates: start: 20200812, end: 20200814
  196. DOXAZOSIN [Concomitant]
     Active Substance: DOXAZOSIN MESYLATE
     Dosage: 4 MG
     Route: 048
     Dates: start: 20190727, end: 20190806
  197. DARBEPOETIN ALFA [Concomitant]
     Active Substance: DARBEPOETIN ALFA
     Indication: CHRONIC KIDNEY DISEASE
     Dosage: 20 UG, VIAL
     Route: 058
     Dates: start: 20190212, end: 20190304
  198. LABETALOL [Concomitant]
     Active Substance: LABETALOL\LABETALOL HYDROCHLORIDE
     Dosage: 12.5 MG/VIAL
     Route: 042
     Dates: start: 20190420, end: 20190420
  199. LABETALOL [Concomitant]
     Active Substance: LABETALOL\LABETALOL HYDROCHLORIDE
     Dosage: 25 MG/VIAL
     Route: 042
     Dates: start: 20200818, end: 20200818
  200. HYDREA [Concomitant]
     Active Substance: HYDROXYUREA
     Indication: MYELODYSPLASTIC SYNDROME
     Dosage: UNK
     Route: 065
  201. CHLORPHENIRAMINE [CHLORPHENAMINE] [Concomitant]
     Active Substance: CHLORPHENIRAMINE
     Dosage: 5 MG/ AMP
     Route: 042
     Dates: start: 20181030, end: 20181118
  202. CHLORPHENIRAMINE [CHLORPHENAMINE] [Concomitant]
     Active Substance: CHLORPHENIRAMINE
     Dosage: 5 MG/ AMP
     Route: 042
     Dates: start: 20190401, end: 20190401
  203. CHLORPHENIRAMINE [CHLORPHENAMINE] [Concomitant]
     Active Substance: CHLORPHENIRAMINE
     Dosage: 5 MG/ AMP
     Route: 042
     Dates: start: 20190718, end: 20190718
  204. CHLORPHENIRAMINE [CHLORPHENAMINE] [Concomitant]
     Active Substance: CHLORPHENIRAMINE
     Dosage: 5 MG/ AMP
     Route: 042
     Dates: start: 20190820, end: 20190820
  205. CHLORPHENIRAMINE [CHLORPHENAMINE] [Concomitant]
     Active Substance: CHLORPHENIRAMINE
     Dosage: 5 MG/ AMP
     Route: 042
     Dates: start: 20190903, end: 20190903
  206. CHLORPHENIRAMINE [CHLORPHENAMINE] [Concomitant]
     Active Substance: CHLORPHENIRAMINE
     Dosage: 5 MG/ AMP
     Route: 042
     Dates: start: 20191015, end: 20191015
  207. CHLORPHENIRAMINE [CHLORPHENAMINE] [Concomitant]
     Active Substance: CHLORPHENIRAMINE
     Dosage: 5 MG/ AMP
     Route: 042
     Dates: start: 20191220, end: 20191220
  208. CHLORPHENIRAMINE [CHLORPHENAMINE] [Concomitant]
     Active Substance: CHLORPHENIRAMINE
     Indication: ALLERGY PROPHYLAXIS
     Dosage: 5 MG/AMP
     Route: 042
     Dates: start: 20200722, end: 20200722
  209. INSULIN HUMAN [Concomitant]
     Active Substance: INSULIN HUMAN
     Dosage: 4 U/ VIAL
     Route: 058
     Dates: start: 20200718, end: 20200718
  210. INSULIN HUMAN [Concomitant]
     Active Substance: INSULIN HUMAN
     Dosage: 6 U/ VIAL
     Route: 058
     Dates: start: 20200827, end: 20200827
  211. INSULIN DEGLUDEC [Concomitant]
     Active Substance: INSULIN DEGLUDEC
     Dosage: 10 U/ PEN
     Route: 058
     Dates: start: 20200815, end: 20200825
  212. TOLTERODINE L?TARTRATE [Concomitant]
     Active Substance: TOLTERODINE TARTRATE
     Indication: CHRONIC KIDNEY DISEASE
     Dosage: 2 MG
     Route: 048
     Dates: start: 20191119, end: 20191121
  213. AMLODIPINE, VALSARTAN AND HYDROCHLOROTHIAZIDE [Concomitant]
     Active Substance: AMLODIPINE BESYLATE\HYDROCHLOROTHIAZIDE\VALSARTAN
     Dosage: 10/ 160/ 25 MG
     Route: 048
     Dates: start: 20200114, end: 20200504
  214. AMLODIPINE BESILATE;VALSARTAN [Concomitant]
     Indication: HYPERTENSIVE HEART DISEASE
     Dosage: 5/160 MG
     Route: 048
     Dates: start: 20200719, end: 20200722
  215. CALCIUM POLYSTYRENE SULFONATE [Concomitant]
     Active Substance: CALCIUM POLYSTYRENE SULFONATE
     Indication: CHRONIC KIDNEY DISEASE
     Dosage: 5 G, PAC
     Route: 048
     Dates: start: 20190108, end: 20190114
  216. HYDROCORTISONE. [Concomitant]
     Active Substance: HYDROCORTISONE
     Indication: ALLERGY PROPHYLAXIS
     Dosage: 100 MG/VIAL
     Route: 042
     Dates: start: 20181118, end: 20181118
  217. WARFARIN [Concomitant]
     Active Substance: WARFARIN
     Indication: HYPERTENSIVE HEART DISEASE
     Dosage: 7.5 MG
     Route: 048
     Dates: start: 20170213, end: 20190329
  218. WARFARIN [Concomitant]
     Active Substance: WARFARIN
     Dosage: 7.5 MG
     Route: 048
     Dates: start: 20191224, end: 20200622
  219. NIFEDIPINE. [Concomitant]
     Active Substance: NIFEDIPINE
     Dosage: 5 MG
     Route: 048
     Dates: start: 20190627, end: 20190627
  220. MINOXIDIL. [Concomitant]
     Active Substance: MINOXIDIL
     Dosage: 5 MG
     Route: 048
     Dates: start: 20200114, end: 20200504
  221. DILTIAZEM. [Concomitant]
     Active Substance: DILTIAZEM
     Dosage: 90 MG
     Route: 048
     Dates: start: 20200821, end: 20200904
  222. INSULIN ASPART [Concomitant]
     Active Substance: INSULIN ASPART
     Dosage: 12 U
     Route: 058
     Dates: start: 20200805, end: 20200805
  223. INSULIN ASPART [Concomitant]
     Active Substance: INSULIN ASPART
     Dosage: 12 U
     Route: 058
     Dates: start: 20200806, end: 20200806
  224. PAROXETINE. [Concomitant]
     Active Substance: PAROXETINE
     Indication: PRODUCT USED FOR UNKNOWN INDICATION
     Dosage: 10 MG
     Route: 048
     Dates: start: 20191014, end: 20191021
  225. IMIDAPRIL HCL [Concomitant]
     Active Substance: IMIDAPRIL HYDROCHLORIDE
     Dosage: 5 MG
     Route: 048
     Dates: start: 20190419, end: 20190429
  226. SEVELAMER CARBONATE. [Concomitant]
     Active Substance: SEVELAMER CARBONATE
     Indication: CHRONIC KIDNEY DISEASE
     Dosage: 0.8 G
     Route: 048
     Dates: start: 20191113, end: 20191119
  227. LABETALOL [Concomitant]
     Active Substance: LABETALOL\LABETALOL HYDROCHLORIDE
     Dosage: 25 MG/AMP
     Route: 042
     Dates: start: 20191213, end: 20191213
  228. METOCLOPRAMIDE. [Concomitant]
     Active Substance: METOCLOPRAMIDE
     Indication: HYPERTENSIVE HEART DISEASE
     Dosage: 5 MG
     Route: 048
     Dates: start: 20190423, end: 20190429
  229. METOLAZONE. [Concomitant]
     Active Substance: METOLAZONE
     Indication: HYPERTENSIVE HEART DISEASE
     Dosage: 0.5 MG
     Route: 048
     Dates: start: 20190330, end: 20190330
  230. CLOPIDOGREL [Concomitant]
     Active Substance: CLOPIDOGREL BISULFATE
     Indication: HYPERTENSIVE HEART DISEASE
     Dosage: 75 MG
     Route: 048
     Dates: start: 20200903, end: 20200905
  231. HCT [Concomitant]
     Active Substance: HYDROCHLOROTHIAZIDE
     Indication: PRODUCT USED FOR UNKNOWN INDICATION
     Dosage: 14 OT, UNK
     Route: 048
  232. HYDRALAZINE [Concomitant]
     Active Substance: HYDRALAZINE HYDROCHLORIDE
     Indication: HYPERTENSIVE HEART DISEASE
     Dosage: 56 MG, QID (PRN)
     Route: 048
  233. CHLORPHENIRAMINE [CHLORPHENAMINE] [Concomitant]
     Active Substance: CHLORPHENIRAMINE
     Dosage: 5 MG/ AMP
     Route: 042
     Dates: start: 20181030, end: 20181030
  234. CHLORPHENIRAMINE [CHLORPHENAMINE] [Concomitant]
     Active Substance: CHLORPHENIRAMINE
     Dosage: 5 MG/ AMP
     Route: 042
     Dates: start: 20191116, end: 20191116
  235. CHLORPHENIRAMINE [CHLORPHENAMINE] [Concomitant]
     Active Substance: CHLORPHENIRAMINE
     Dosage: 5 MG/ AMP
     Route: 042
     Dates: start: 20200219, end: 20200219
  236. CHLORPHENIRAMINE [CHLORPHENAMINE] [Concomitant]
     Active Substance: CHLORPHENIRAMINE
     Dosage: 5 MG/ AMP
     Route: 042
     Dates: start: 20200706, end: 20200706
  237. CHLORPHENIRAMINE [CHLORPHENAMINE] [Concomitant]
     Active Substance: CHLORPHENIRAMINE
     Dosage: 5 MG/ AMP
     Route: 042
     Dates: start: 20200709, end: 20200709
  238. CHLORPHENIRAMINE [CHLORPHENAMINE] [Concomitant]
     Active Substance: CHLORPHENIRAMINE
     Dosage: 5 MG/ AMP
     Route: 042
     Dates: start: 20200716, end: 20200716
  239. CHLORPHENIRAMINE [CHLORPHENAMINE] [Concomitant]
     Active Substance: CHLORPHENIRAMINE
     Dosage: 5 MG/AMP
     Route: 042
     Dates: start: 20200906, end: 20200906
  240. INSULIN GLARGINE [Concomitant]
     Active Substance: INSULIN GLARGINE
     Indication: DIABETES MELLITUS
     Dosage: 6 U/ML
     Route: 058
     Dates: start: 20190408, end: 20190418
  241. INSULIN HUMAN [Concomitant]
     Active Substance: INSULIN HUMAN
     Dosage: 4 U/ VIAL
     Route: 058
     Dates: start: 20200826, end: 20200826
  242. TAZOCIN [Concomitant]
     Active Substance: PIPERACILLIN SODIUM\TAZOBACTAM SODIUM
     Indication: PYREXIA
     Dosage: 2.25 G/VAIL
     Route: 042
     Dates: start: 20190626, end: 20190626
  243. INSULIN DEGLUDEC [Concomitant]
     Active Substance: INSULIN DEGLUDEC
     Dosage: 12 U/ PEN
     Route: 058
     Dates: start: 20200826, end: 20200826
  244. JAKAVI [Suspect]
     Active Substance: RUXOLITINIB
     Dosage: 5 MG (DAILY)
     Route: 048
     Dates: start: 20190903, end: 20190916
  245. JAKAVI [Suspect]
     Active Substance: RUXOLITINIB
     Dosage: 10 MG
     Route: 048
     Dates: start: 20190917, end: 20191014
  246. AMLODIPINE, VALSARTAN AND HYDROCHLOROTHIAZIDE [Concomitant]
     Active Substance: AMLODIPINE BESYLATE\HYDROCHLOROTHIAZIDE\VALSARTAN
     Dosage: 5/ 40/ 12.5 MG
     Route: 048
     Dates: start: 20190614, end: 20190628
  247. BISOPROLOL [Concomitant]
     Active Substance: BISOPROLOL
     Indication: HYPERTENSIVE HEART DISEASE
     Dosage: 2.5 MG
     Route: 048
     Dates: start: 20171228, end: 20190122
  248. HYDROCORTISONE. [Concomitant]
     Active Substance: HYDROCORTISONE
     Dosage: 100 MG/VIAL
     Route: 042
     Dates: start: 20190330, end: 20190330
  249. FUROSEMIDE. [Concomitant]
     Active Substance: FUROSEMIDE
     Dosage: 20 MG/VIAL
     Route: 042
     Dates: start: 20190412, end: 20190412
  250. FUROSEMIDE. [Concomitant]
     Active Substance: FUROSEMIDE
     Dosage: 20 MG/VIAL
     Route: 042
     Dates: start: 20190413, end: 20190416
  251. FUROSEMIDE. [Concomitant]
     Active Substance: FUROSEMIDE
     Dosage: 20 MG/AMP
     Route: 042
     Dates: start: 20191112, end: 20191112
  252. FUROSEMIDE. [Concomitant]
     Active Substance: FUROSEMIDE
     Dosage: 20 MG/AMP
     Route: 042
     Dates: start: 20191116, end: 20191116
  253. FUROSEMIDE. [Concomitant]
     Active Substance: FUROSEMIDE
     Dosage: 20 MG/AMP
     Route: 042
     Dates: start: 20191210, end: 20191210
  254. FUROSEMIDE. [Concomitant]
     Active Substance: FUROSEMIDE
     Dosage: 20 MG/AMP
     Route: 042
     Dates: start: 20200114, end: 20200114
  255. TOLTERODINE TARTRATE. [Concomitant]
     Active Substance: TOLTERODINE TARTRATE
     Indication: CHRONIC KIDNEY DISEASE
     Dosage: 2 MG
     Route: 048
     Dates: start: 20191119, end: 20191121
  256. OLMESARTAN MEDOXOMIL;ROSUVASTATIN CALCIUM [Concomitant]
     Indication: HYPERTENSIVE HEART DISEASE
     Dosage: 20 MG
     Route: 048
     Dates: start: 20200820, end: 20200905
  257. NIFEDIPINE. [Concomitant]
     Active Substance: NIFEDIPINE
     Dosage: 5 MG
     Route: 048
     Dates: start: 20190423, end: 20190423
  258. NIFEDIPINE. [Concomitant]
     Active Substance: NIFEDIPINE
     Dosage: 5 MG
     Route: 048
     Dates: start: 20190701, end: 20190701
  259. NIFEDIPINE. [Concomitant]
     Active Substance: NIFEDIPINE
     Dosage: 5 MG
     Route: 048
     Dates: start: 20191001, end: 20191001
  260. MINOXIDIL. [Concomitant]
     Active Substance: MINOXIDIL
     Dosage: 5 MG
     Route: 048
     Dates: start: 20200825, end: 20200830
  261. DILTIAZEM. [Concomitant]
     Active Substance: DILTIAZEM
     Dosage: 90 MG
     Route: 048
     Dates: start: 20200905, end: 20200905
  262. LINAGLIPTIN [Concomitant]
     Active Substance: LINAGLIPTIN
     Indication: DIABETES MELLITUS
     Dosage: 5 MG
     Route: 048
     Dates: start: 20190419, end: 20190429
  263. MIRTAZAPINE. [Concomitant]
     Active Substance: MIRTAZAPINE
     Indication: PRODUCT USED FOR UNKNOWN INDICATION
     Dosage: 15 MG
     Route: 048
     Dates: start: 20191007, end: 20191014
  264. INSULIN ASPART [Concomitant]
     Active Substance: INSULIN ASPART
     Dosage: 10 U
     Route: 058
     Dates: start: 20200812, end: 20200812
  265. INSULIN ASPART [Concomitant]
     Active Substance: INSULIN ASPART
     Dosage: 4 U
     Route: 058
     Dates: start: 20200814, end: 20200825
  266. INSULIN ASPART [Concomitant]
     Active Substance: INSULIN ASPART
     Dosage: 12 U
     Route: 058
     Dates: start: 20200829, end: 20200905
  267. CARVEDILOL. [Concomitant]
     Active Substance: CARVEDILOL
     Indication: HYPERTENSIVE HEART DISEASE
     Dosage: 12.5 MG
     Route: 048
     Dates: start: 20190726, end: 20190806
  268. IMIDAPRIL HCL [Concomitant]
     Active Substance: IMIDAPRIL HYDROCHLORIDE
     Dosage: 10 MG
     Route: 048
     Dates: start: 20190430, end: 20191014
  269. DOXAZOSIN [Concomitant]
     Active Substance: DOXAZOSIN MESYLATE
     Dosage: 4 MG
     Route: 048
     Dates: start: 20190509, end: 20190510
  270. DOXAZOSIN [Concomitant]
     Active Substance: DOXAZOSIN MESYLATE
     Dosage: 4 MG
     Route: 048
     Dates: start: 20190723, end: 20190727
  271. DOXAZOSIN [Concomitant]
     Active Substance: DOXAZOSIN MESYLATE
     Dosage: 4 MG
     Route: 048
     Dates: start: 20200707, end: 20200708
  272. LERCANIDIPINE [Concomitant]
     Active Substance: LERCANIDIPINE
     Indication: HYPERTENSIVE HEART DISEASE
     Dosage: 10 MG
     Route: 048
     Dates: start: 20190411, end: 20190429
  273. FLUOROMETHOLONE. [Concomitant]
     Active Substance: FLUOROMETHOLONE
     Indication: PRODUCT USED FOR UNKNOWN INDICATION
     Dosage: 5 ML
     Route: 050
     Dates: start: 20200206, end: 20200212
  274. HYDRALAZINE [Concomitant]
     Active Substance: HYDRALAZINE HYDROCHLORIDE
     Dosage: 10 MG
     Route: 048
     Dates: start: 20190612, end: 20190627
  275. HYDRALAZINE [Concomitant]
     Active Substance: HYDRALAZINE HYDROCHLORIDE
     Dosage: 10 MG
     Route: 048
     Dates: start: 20190712, end: 20200712
  276. HYDRALAZINE [Concomitant]
     Active Substance: HYDRALAZINE HYDROCHLORIDE
     Dosage: 10 MG
     Route: 048
     Dates: start: 20200805
  277. CHLORPHENIRAMINE [CHLORPHENAMINE] [Concomitant]
     Active Substance: CHLORPHENIRAMINE
     Indication: ALLERGY PROPHYLAXIS
     Dosage: 5 MG/ AMP
     Route: 042
     Dates: start: 20181002, end: 20181002
  278. CHLORPHENIRAMINE [CHLORPHENAMINE] [Concomitant]
     Active Substance: CHLORPHENIRAMINE
     Dosage: 5 MG/ AMP
     Route: 042
     Dates: start: 20190212, end: 20190212
  279. CHLORPHENIRAMINE [CHLORPHENAMINE] [Concomitant]
     Active Substance: CHLORPHENIRAMINE
     Dosage: 5 MG/ AMP
     Route: 042
     Dates: start: 20190412, end: 20190412
  280. CHLORPHENIRAMINE [CHLORPHENAMINE] [Concomitant]
     Active Substance: CHLORPHENIRAMINE
     Dosage: 5 MG/ AMP
     Route: 042
     Dates: start: 20200317, end: 20200317
  281. CHLORPHENIRAMINE [CHLORPHENAMINE] [Concomitant]
     Active Substance: CHLORPHENIRAMINE
     Dosage: 5 MG/AMP
     Route: 042
     Dates: start: 20200803, end: 20200803
  282. CHLORPHENIRAMINE [CHLORPHENAMINE] [Concomitant]
     Active Substance: CHLORPHENIRAMINE
     Dosage: 5 MG/AMP
     Route: 042
     Dates: start: 20200816, end: 20200816
  283. INSULIN HUMAN [Concomitant]
     Active Substance: INSULIN HUMAN
     Dosage: 4 U/ VIAL
     Route: 058
     Dates: start: 20200717, end: 20200717
  284. INSULIN DEGLUDEC [Concomitant]
     Active Substance: INSULIN DEGLUDEC
     Dosage: 15 U/ PEN
     Route: 058
     Dates: start: 20200827, end: 20200905
  285. THROUGH [Concomitant]
     Indication: CONSTIPATION
     Dosage: 12 MG
     Route: 048
     Dates: start: 20200709, end: 20200718
  286. AMIYU [Concomitant]
     Active Substance: AMINO ACIDS, SOURCE UNSPECIFIED
     Dosage: 200 ML/ BOT
     Route: 042
     Dates: start: 20200708, end: 20200711

REACTIONS (42)
  - Acute kidney injury [Not Recovered/Not Resolved]
  - Pneumonia cytomegaloviral [Recovering/Resolving]
  - Spinal compression fracture [Unknown]
  - Illness [Unknown]
  - Viral infection [Unknown]
  - Oedema peripheral [Unknown]
  - Cough [Recovered/Resolved]
  - Dyspnoea [Recovered/Resolved]
  - Epigastric discomfort [Unknown]
  - Pyrexia [Recovered/Resolved]
  - Chills [Recovering/Resolving]
  - Thrombocytopenia [Unknown]
  - Vomiting [Recovered/Resolved]
  - Bacterial infection [Unknown]
  - Chills [Recovered/Resolved]
  - Anaemia [Unknown]
  - Chills [Recovered/Resolved]
  - Pneumocystis jirovecii pneumonia [Unknown]
  - Dyspnoea exertional [Unknown]
  - Pyrexia [Recovered/Resolved]
  - Decreased appetite [Unknown]
  - Rash [Unknown]
  - Choking [Unknown]
  - Lung consolidation [Recovering/Resolving]
  - Dyspnoea [Recovered/Resolved]
  - Eosinophilic pneumonia [Recovering/Resolving]
  - Bone marrow failure [Unknown]
  - Lung infiltration [Recovering/Resolving]
  - Productive cough [Recovered/Resolved]
  - Blood pressure increased [Unknown]
  - Arteriosclerosis coronary artery [Unknown]
  - Pyrexia [Recovered/Resolved]
  - Interstitial lung disease [Unknown]
  - Burning sensation [Unknown]
  - Diarrhoea [Unknown]
  - Aortic arteriosclerosis [Unknown]
  - Malaise [Unknown]
  - Thyroid mass [Unknown]
  - Hyperferritinaemia [Unknown]
  - Hypersensitivity pneumonitis [Recovering/Resolving]
  - Headache [Unknown]
  - Pneumonia [Recovered/Resolved]

NARRATIVE: CASE EVENT DATE: 20181118
